FAERS Safety Report 11709432 (Version 1)
Quarter: 2015Q4

REPORT INFORMATION
  Report Type: Spontaneous
  Country: US (occurrence: US)
  Receive Date: 20151104
  Receipt Date: 20151104
  Transmission Date: 20160304
  Serious: No
  Sender: FDA-Public Use
  Company Number: US-ELI_LILLY_AND_COMPANY-US201109001404

PATIENT
  Age: 63 Year
  Sex: Female

DRUGS (2)
  1. FORTEO [Suspect]
     Active Substance: TERIPARATIDE
     Dosage: 20 UG, QD
     Route: 065
  2. FORTEO [Suspect]
     Active Substance: TERIPARATIDE
     Indication: OSTEOPOROSIS
     Dosage: 20 UG, QD
     Route: 065
     Dates: start: 20110801

REACTIONS (18)
  - Arthralgia [Unknown]
  - Pain [Unknown]
  - Abdominal discomfort [Recovering/Resolving]
  - Decreased activity [Not Recovered/Not Resolved]
  - Fatigue [Not Recovered/Not Resolved]
  - Vomiting [Recovered/Resolved]
  - Arthropathy [Unknown]
  - Pain in jaw [Unknown]
  - Sinusitis [Recovering/Resolving]
  - Poor quality sleep [Unknown]
  - Asthenia [Unknown]
  - Blood pressure decreased [Unknown]
  - Nausea [Not Recovered/Not Resolved]
  - Onychalgia [Unknown]
  - Feeling abnormal [Unknown]
  - Depression [Unknown]
  - Migraine [Recovered/Resolved]
  - Dysphonia [Not Recovered/Not Resolved]

NARRATIVE: CASE EVENT DATE: 20110801
